FAERS Safety Report 17128820 (Version 1)
Quarter: 2019Q4

REPORT INFORMATION
  Report Type: Spontaneous
  Country: US (occurrence: US)
  Receive Date: 20191206
  Receipt Date: 20191206
  Transmission Date: 20200122
  Serious: Yes (Disabling)
  Sender: FDA-Public Use
  Company Number: None

PATIENT
  Age: 50 Year
  Sex: Female
  Weight: 84.15 kg

DRUGS (1)
  1. HYDROCODONE/ACETAMINOPHEN [Suspect]
     Active Substance: ACETAMINOPHEN\HYDROCODONE
     Indication: INTERVERTEBRAL DISC DEGENERATION
     Dosage: ?          QUANTITY:1 TABLET(S);?
     Route: 048
     Dates: start: 20180401, end: 20191123

REACTIONS (11)
  - Pruritus [None]
  - Hypersensitivity [None]
  - Eye irritation [None]
  - Product complaint [None]
  - Lacrimation increased [None]
  - Chest discomfort [None]
  - Wheezing [None]
  - Skin burning sensation [None]
  - Dyspnoea [None]
  - Swelling [None]
  - Product substitution issue [None]

NARRATIVE: CASE EVENT DATE: 20180428
